FAERS Safety Report 24231206 (Version 1)
Quarter: 2024Q3

REPORT INFORMATION
  Report Type: Spontaneous
  Country: IT (occurrence: IT)
  Receive Date: 20240821
  Receipt Date: 20240821
  Transmission Date: 20241017
  Serious: Yes (Other)
  Sender: AMGEN
  Company Number: IT-ROCHE-3564088

PATIENT
  Age: 72 Year
  Sex: Male
  Weight: 75 kg

DRUGS (10)
  1. BEVACIZUMAB [Suspect]
     Active Substance: BEVACIZUMAB
     Indication: Hepatocellular carcinoma
     Dosage: 1155 MILLIGRAM, Q3WK (ON 15/APR/2024, HE RECEIVED MOST RECENT DOSE OF BEVACIZUMAB (1155 MG) PRIOR TO
     Route: 042
     Dates: start: 20240304
  2. TIRAGOLUMAB [Suspect]
     Active Substance: TIRAGOLUMAB
     Indication: Hepatocellular carcinoma
     Dosage: ON 15/APR/2024, HE RECEIVED MOST RECENT DOSE OF TIRAGOLUMAB PRIOR TO AE.
     Route: 040
     Dates: start: 20240304
  3. ATEZOLIZUMAB [Suspect]
     Active Substance: ATEZOLIZUMAB
     Indication: Hepatocellular carcinoma
     Dosage: ON 15/APR/2024, HE RECEIVED MOST RECENT DOSE OF ATEZOLIZUMAB (1200 MG) PRIOR TO AE.
     Route: 040
     Dates: start: 20240304
  4. GENTALYN BETA [Concomitant]
     Indication: Rash
     Dosage: UNK
     Route: 065
     Dates: start: 20240503, end: 20240524
  5. 2^,4^,5^,7^- TETRABROMOFLUORESCEIN [Concomitant]
     Active Substance: 2^,4^,5^,7^- TETRABROMOFLUORESCEIN
     Indication: Rash
     Dosage: UNK
     Route: 061
     Dates: start: 20240524
  6. CARVEDILOL [Concomitant]
     Active Substance: CARVEDILOL
     Indication: Hypertension
     Dosage: 6.25 MILLIGRAM
     Route: 048
  7. AMUKINE MED [Concomitant]
     Indication: Product used for unknown indication
     Dosage: UNK
     Route: 065
     Dates: start: 20240503, end: 20240524
  8. ROSUVASTATIN [Concomitant]
     Active Substance: ROSUVASTATIN\ROSUVASTATIN CALCIUM
     Indication: Hypercholesterolaemia
     Dosage: 10 MILLIGRAM, QD
     Route: 048
  9. RAMIPRIL [Concomitant]
     Active Substance: RAMIPRIL
     Indication: Product used for unknown indication
     Dosage: 2.5 MILLIGRAM, QD
     Route: 048
     Dates: start: 20240217
  10. LAMIVUDINE [Concomitant]
     Active Substance: LAMIVUDINE
     Indication: Product used for unknown indication
     Dosage: 100 MILLIGRAM, QD
     Route: 048
     Dates: start: 20240216

REACTIONS (2)
  - Hyperthyroidism [Recovered/Resolved]
  - Off label use [Unknown]

NARRATIVE: CASE EVENT DATE: 20240503
